FAERS Safety Report 4299085-5 (Version None)
Quarter: 2004Q1

REPORT INFORMATION
  Report Type: 
  Country: None (occurrence: None)
  Receive Date: 20040217
  Receipt Date: 20040203
  Transmission Date: 20041129
  Serious: Yes (Death, Hospitalization)
  Sender: FDA-Public Use
  Company Number: 03P-163-0230547-00

PATIENT
  Age: 47 Year
  Sex: Male

DRUGS (7)
  1. NORVIR [Suspect]
     Indication: HIV INFECTION
     Dosage: PER ORAL
     Route: 048
     Dates: start: 20030404, end: 20030913
  2. TIPRANAVIR [Concomitant]
  3. EFAVIRENZ [Concomitant]
  4. ATOVAQUONE [Concomitant]
  5. AZITHROMYCIN [Concomitant]
  6. TENOFOVIR [Concomitant]
  7. MULTI-VITAMINS [Concomitant]

REACTIONS (9)
  - ACQUIRED IMMUNODEFICIENCY SYNDROME [None]
  - AMNESIA [None]
  - CEREBRAL ATROPHY [None]
  - CSF PROTEIN INCREASED [None]
  - DIARRHOEA [None]
  - HYPOKALAEMIA [None]
  - HYPOPHOSPHATAEMIA [None]
  - LIVER DISORDER [None]
  - MENTAL STATUS CHANGES [None]
